FAERS Safety Report 8267552-5 (Version None)
Quarter: 2012Q2

REPORT INFORMATION
  Report Type: 
  Country: None (occurrence: None)
  Receive Date: 20120404
  Receipt Date: 20120320
  Transmission Date: 20120825
  Serious: Yes (Hospitalization)
  Sender: FDA-Public Use
  Company Number: B0787651A

PATIENT
  Age: 44 Year
  Sex: Female

DRUGS (8)
  1. PAROXETINE HYDROCHLORIDE [Suspect]
     Indication: PRODUCT USED FOR UNKNOWN INDICATION
     Dosage: 20 MG / PER DAY / ORAL
     Route: 048
     Dates: start: 20110601, end: 20111204
  2. CITICOLINE (FORMULATION UNKNOWN) (CITICOLINE) [Suspect]
     Indication: PRODUCT USED FOR UNKNOWN INDICATION
     Dosage: 1 GRAM(S) / PER DAY
     Dates: start: 20111001, end: 20111204
  3. FLECAINIDE ACETATE [Suspect]
     Indication: PRODUCT USED FOR UNKNOWN INDICATION
     Dosage: 50 MG / TWICE PER DAY / ORAL
     Route: 048
     Dates: start: 20110601
  4. RANITIDINE HYDROCHLORIDE [Suspect]
     Indication: PRODUCT USED FOR UNKNOWN INDICATION
     Dosage: 150 MG / PER DAY/
     Dates: start: 20110601
  5. LEVETIRACETAM [Suspect]
     Indication: CONVULSION
     Dosage: 1500 MG / TWICE PER DAY / ORAL
     Route: 048
     Dates: start: 20110601
  6. CLOPIDOGREL [Suspect]
     Indication: PRODUCT USED FOR UNKNOWN INDICATION
     Dosage: 75 MG / PER DAY / ORAL
     Route: 048
     Dates: start: 20110601, end: 20111204
  7. DABIGATRAN ETEX MESILAT CAPSULE (DABIGARTAN ETEX MESILAT) [Suspect]
     Indication: CEREBROVASCULAR ACCIDENT
     Dosage: 110 MG / PER DAY / ORAL
     Route: 048
     Dates: start: 20111011, end: 20111204
  8. SOLIFENACIN SUCCINATE [Suspect]
     Indication: PRODUCT USED FOR UNKNOWN INDICATION
     Dosage: 5 MG / PER DAY / ORAL
     Route: 048
     Dates: start: 20111001, end: 20111204

REACTIONS (2)
  - DRUG INTERACTION [None]
  - HEPATITIS [None]
